APPROVED DRUG PRODUCT: ELIXOPHYLLIN
Active Ingredient: THEOPHYLLINE
Strength: 100MG
Dosage Form/Route: CAPSULE;ORAL
Application: A085545 | Product #001
Applicant: FOREST LABORATORIES INC
Approved: Jul 31, 1984 | RLD: No | RS: No | Type: DISCN